FAERS Safety Report 8669518 (Version 7)
Quarter: 2014Q3

REPORT INFORMATION
  Report Type: Spontaneous
  Country: US (occurrence: US)
  Receive Date: 20120718
  Receipt Date: 20140701
  Transmission Date: 20150326
  Serious: No
  Sender: FDA-Public Use
  Company Number: US-PFIZER INC-2012166395

PATIENT
  Age: 35 Year
  Sex: Female
  Weight: 119 kg

DRUGS (18)
  1. FLONASE [Concomitant]
     Active Substance: FLUTICASONE PROPIONATE
     Dosage: 50 UG, 2 SQUIRTS DAILY
  2. SYNTHROID [Concomitant]
     Active Substance: LEVOTHYROXINE SODIUM
     Dosage: 112 MCG TABLET, 2 TABLET ON EMPTY STOMACH
  3. ZANTAC [Concomitant]
     Active Substance: RANITIDINE HYDROCHLORIDE
     Dosage: 75 TAB
  4. VITAMIN C [Concomitant]
     Active Substance: ASCORBIC ACID
     Dosage: 500 MG, 1X/DAY
  5. GENOTROPIN MQ [Suspect]
     Active Substance: SOMATROPIN
     Dosage: 0.6 MG, EVERY DAY
     Route: 058
     Dates: start: 20130114
  6. SYNTHROID [Concomitant]
     Active Substance: LEVOTHYROXINE SODIUM
     Dosage: 100 UG, UNK
  7. VITAMIN D3 [Concomitant]
     Active Substance: CHOLECALCIFEROL
     Dosage: 1000 IU, 1X/DAY
  8. ZYRTEC [Concomitant]
     Active Substance: CETIRIZINE HYDROCHLORIDE
     Dosage: 10 MG, 1X/DAY
  9. OCELLA [Concomitant]
     Active Substance: DROSPIRENONE\ETHINYL ESTRADIOL
     Dosage: DROSPIRENONE 3 MG/ ETHINYLESTRADIOL 0.03 MG/ ONCE DAILY
  10. ZYRTEC [Concomitant]
     Active Substance: CETIRIZINE HYDROCHLORIDE
     Dosage: 10 MG (1 TABLET), AS NEEDED
  11. DDAVP [Concomitant]
     Active Substance: DESMOPRESSIN ACETATE
     Dosage: 0.1 MG, UNK
  12. VITAMIN D3 [Concomitant]
     Active Substance: CHOLECALCIFEROL
     Dosage: 10000 IU, 1X/DAY
  13. GENOTROPIN MQ [Suspect]
     Active Substance: SOMATROPIN
     Indication: HYPOPITUITARISM
     Dosage: 0.4 MG, 1XDAY
     Route: 058
  14. GENOTROPIN MQ [Suspect]
     Active Substance: SOMATROPIN
     Dosage: 0.6 MG, EVERY DAY
     Route: 058
     Dates: start: 2011
  15. GENOTROPIN MQ [Suspect]
     Active Substance: SOMATROPIN
     Dosage: 0.4 MG, 1XDAY
     Route: 058
  16. SYNTHROID [Concomitant]
     Active Substance: LEVOTHYROXINE SODIUM
     Dosage: 200 UG, 1X/DAY
  17. DDAVP [Concomitant]
     Active Substance: DESMOPRESSIN ACETATE
     Dosage: 10 UG, 2X/DAY
     Route: 055
  18. BIOTIN [Concomitant]
     Active Substance: BIOTIN
     Dosage: UNK

REACTIONS (16)
  - Injection site bruising [Recovered/Resolved]
  - Nausea [Unknown]
  - Fatigue [Unknown]
  - Chest pain [Recovered/Resolved]
  - Muscular weakness [Unknown]
  - Vomiting [Unknown]
  - Neck pain [Unknown]
  - Weight loss poor [Unknown]
  - Musculoskeletal stiffness [Unknown]
  - Wheezing [Unknown]
  - Myalgia [Unknown]
  - Mood swings [Unknown]
  - Depression [Unknown]
  - Dyspepsia [Unknown]
  - Headache [Unknown]
  - Gastrooesophageal reflux disease [Unknown]

NARRATIVE: CASE EVENT DATE: 20130811
